FAERS Safety Report 14385517 (Version 2)
Quarter: 2018Q3

REPORT INFORMATION
  Report Type: Spontaneous
  Country: US (occurrence: US)
  Receive Date: 20180115
  Receipt Date: 20180704
  Transmission Date: 20181010
  Serious: Yes (Other)
  Sender: FDA-Public Use
  Company Number: US-SA-2016SA233972

PATIENT
  Age: 53 Year
  Sex: Female
  Weight: 77.11 kg

DRUGS (11)
  1. AMLODIPINE BESILATE [Concomitant]
     Active Substance: AMLODIPINE BESYLATE
     Dosage: UNK UNK,UNK
     Route: 065
     Dates: start: 20040101
  2. ZOFRAN [ONDANSETRON] [Concomitant]
     Dosage: UNK UNK,UNK
     Route: 042
  3. TRASTUZUMAB. [Concomitant]
     Active Substance: TRASTUZUMAB
     Dosage: UNK UNK,UNK
     Route: 042
  4. TAXOTERE [Suspect]
     Active Substance: DOCETAXEL
     Indication: BREAST CANCER STAGE II
     Dosage: 135 MG,Q3W
     Route: 042
     Dates: start: 20111017, end: 20111017
  5. TAXOTERE [Suspect]
     Active Substance: DOCETAXEL
     Dosage: 135 MG,Q3W
     Route: 042
     Dates: start: 20120130, end: 20120130
  6. HYDROCHLOROTHIAZIDE. [Concomitant]
     Active Substance: HYDROCHLOROTHIAZIDE
     Dosage: UNK UNK,UNK
     Route: 065
     Dates: start: 20040101
  7. FAMOTIDINE. [Concomitant]
     Active Substance: FAMOTIDINE
     Dosage: UNK UNK,UNK
     Route: 042
  8. ECOTRIN [Concomitant]
     Active Substance: ASPIRIN
  9. DEXAMETHASONE. [Concomitant]
     Active Substance: DEXAMETHASONE
     Dosage: UNK UNK,UNK
     Route: 042
  10. BENAZEPRIL [Concomitant]
     Active Substance: BENAZEPRIL HYDROCHLORIDE
     Dosage: UNK UNK,UNK
     Route: 065
     Dates: start: 20040101
  11. PARAPLATIN [Concomitant]
     Active Substance: CARBOPLATIN

REACTIONS (5)
  - Alopecia [Recovering/Resolving]
  - Psychological trauma [Unknown]
  - Anxiety [Unknown]
  - Pain [Unknown]
  - Emotional distress [Unknown]
